FAERS Safety Report 9791508 (Version 1)
Quarter: 2014Q1

REPORT INFORMATION
  Report Type: Spontaneous
  Country: US (occurrence: US)
  Receive Date: 20140101
  Receipt Date: 20140101
  Transmission Date: 20141002
  Serious: Yes (Other)
  Sender: FDA-Public Use
  Company Number: CHPA2013US019040

PATIENT
  Age: 83 Year
  Sex: Female

DRUGS (1)
  1. MAALOX ADV MAXIMUM STRENGTH ANTACID/ANTIGAS CHEWABLE [Suspect]
     Indication: ABDOMINAL DISCOMFORT
     Dosage: 1/2 TO 1 DF, UNK
     Route: 048

REACTIONS (3)
  - Cataract [Recovered/Resolved]
  - Arthropathy [Recovered/Resolved]
  - Underdose [Unknown]
